FAERS Safety Report 20282293 (Version 2)
Quarter: 2022Q1

REPORT INFORMATION
  Report Type: Report from Study
  Country: MX (occurrence: MX)
  Receive Date: 20220103
  Receipt Date: 20220104
  Transmission Date: 20220423
  Serious: Yes (Life-Threatening)
  Sender: FDA-Public Use
  Company Number: MX-NOVARTISPH-NVSC2021MX281630

PATIENT
  Age: 80 Year
  Sex: Female
  Weight: 43 kg

DRUGS (10)
  1. INDACATEROL MALEATE [Suspect]
     Active Substance: INDACATEROL MALEATE
     Indication: Lung disorder
     Dosage: 1 DOSAGE FORM, QD
     Route: 055
     Dates: start: 20211201
  2. INDACATEROL MALEATE [Suspect]
     Active Substance: INDACATEROL MALEATE
     Dosage: 1 DOSAGE FORM (150MCG), QD, SEVERAL YEARS AGO
     Route: 055
     Dates: end: 20211207
  3. INDACATEROL MALEATE [Suspect]
     Active Substance: INDACATEROL MALEATE
     Dosage: 1 DOSAGE FORM (150MCG), QD
     Route: 055
     Dates: start: 20211212
  4. GLYCOPYRRONIUM\INDACATEROL [Suspect]
     Active Substance: GLYCOPYRRONIUM\INDACATEROL
     Indication: Lung disorder
     Dosage: 1 DOSAGE FORM,  (110/50MCG)
     Route: 055
     Dates: start: 20211209, end: 20211211
  5. GLYCOPYRRONIUM\INDACATEROL [Suspect]
     Active Substance: GLYCOPYRRONIUM\INDACATEROL
     Dosage: UNK
     Route: 065
  6. CALCIUM CARBONATE\ERGOCALCIFEROL\RETINOL [Concomitant]
     Active Substance: CALCIUM CARBONATE\ERGOCALCIFEROL\RETINOL
     Indication: Bone disorder
     Route: 065
  7. CALCIUM CARBONATE\ERGOCALCIFEROL\RETINOL [Concomitant]
     Active Substance: CALCIUM CARBONATE\ERGOCALCIFEROL\RETINOL
     Dosage: 1 DOSAGE FORM, QD (3 YEARS AGO)
     Route: 048
  8. COMBESTERAL [Concomitant]
     Indication: Product used for unknown indication
     Route: 065
  9. NIFEDIPINE [Concomitant]
     Active Substance: NIFEDIPINE
     Indication: Hypertension
     Dosage: 1 DOSAGE FORM, QD (SEVERAL YEARS AGO)
     Route: 048
  10. OMEGA-3 ACIDS [Concomitant]
     Active Substance: OMEGA-3 FATTY ACIDS
     Indication: Vitamin supplementation
     Dosage: 1 DOSAGE FORM, QD (3 YEARS AGO)
     Route: 048

REACTIONS (14)
  - Feeling abnormal [Recovered/Resolved]
  - Blood pressure increased [Recovered/Resolved]
  - Somnolence [Recovered/Resolved]
  - Peripheral swelling [Recovered/Resolved]
  - Diarrhoea [Recovered/Resolved]
  - Vomiting [Recovered/Resolved]
  - Pyrexia [Recovered/Resolved]
  - Headache [Recovered/Resolved]
  - Tinnitus [Unknown]
  - Pain [Unknown]
  - Weight decreased [Unknown]
  - Hypoacusis [Unknown]
  - Ear discomfort [Recovered/Resolved]
  - Product use in unapproved indication [Unknown]

NARRATIVE: CASE EVENT DATE: 20211211
